FAERS Safety Report 19132850 (Version 1)
Quarter: 2021Q2

REPORT INFORMATION
  Report Type: Spontaneous
  Country: US (occurrence: US)
  Receive Date: 20210413
  Receipt Date: 20210413
  Transmission Date: 20210717
  Serious: No
  Sender: FDA-Public Use
  Company Number: None

PATIENT
  Sex: Male

DRUGS (1)
  1. TALTZ [Suspect]
     Active Substance: IXEKIZUMAB
     Indication: PSORIASIS
     Dosage: OTHER FREQUENCY:EVERY 4 WEEKS;?
     Route: 058
     Dates: start: 2020, end: 202101

REACTIONS (3)
  - Ear infection [None]
  - Eye infection [None]
  - Condition aggravated [None]
